FAERS Safety Report 16575181 (Version 1)
Quarter: 2019Q3

REPORT INFORMATION
  Report Type: Report from Study
  Country: CL (occurrence: CL)
  Receive Date: 20190715
  Receipt Date: 20190715
  Transmission Date: 20191004
  Serious: Yes (Death)
  Sender: FDA-Public Use
  Company Number: PHHY2019CL119011

PATIENT
  Age: 53 Year
  Sex: Male

DRUGS (4)
  1. COSENTYX [Suspect]
     Active Substance: SECUKINUMAB
     Indication: ANKYLOSING SPONDYLITIS
     Dosage: 150 MG, QMO
     Route: 058
     Dates: start: 201803
  2. COSENTYX [Suspect]
     Active Substance: SECUKINUMAB
     Dosage: UNK
     Route: 065
     Dates: start: 20190522
  3. NAPROXEN. [Concomitant]
     Active Substance: NAPROXEN
     Indication: PRODUCT USED FOR UNKNOWN INDICATION
     Route: 065
  4. COSENTYX [Suspect]
     Active Substance: SECUKINUMAB
     Dosage: UNK
     Route: 065
     Dates: start: 20190407

REACTIONS (14)
  - Peritonitis [Fatal]
  - Influenza [Unknown]
  - Nasal congestion [Unknown]
  - Colon cancer [Fatal]
  - Pulmonary embolism [Fatal]
  - Dry throat [Unknown]
  - Throat tightness [Unknown]
  - Laryngeal pain [Unknown]
  - Pain [Unknown]
  - Dysphonia [Unknown]
  - Larynx irritation [Unknown]
  - Nasopharyngitis [Fatal]
  - Rhinorrhoea [Unknown]
  - Productive cough [Unknown]

NARRATIVE: CASE EVENT DATE: 20190511
